FAERS Safety Report 8766891 (Version 2)
Quarter: 2012Q4

REPORT INFORMATION
  Report Type: 
  Country: US (occurrence: US)
  Receive Date: 20120904
  Receipt Date: 20120924
  Transmission Date: 20130627
  Serious: Yes (Hospitalization)
  Sender: FDA-Public Use
  Company Number: US-JNJFOC-20120812302

PATIENT
  Sex: Female

DRUGS (5)
  1. INVEGA SUSTENNA [Suspect]
     Indication: SCHIZOAFFECTIVE DISORDER
     Route: 030
     Dates: start: 20100923
  2. INVEGA SUSTENNA [Suspect]
     Indication: SCHIZOAFFECTIVE DISORDER
     Route: 030
     Dates: end: 20120703
  3. BUPROPION [Concomitant]
     Indication: MOOD SWINGS
     Route: 048
     Dates: start: 20120531
  4. HALOPERIDOL [Concomitant]
     Indication: HALLUCINATION
     Route: 048
     Dates: start: 20120531
  5. INVEGA [Concomitant]
     Indication: HALLUCINATION, AUDITORY
     Route: 048
     Dates: start: 20120531

REACTIONS (2)
  - Injection site pain [Recovered/Resolved]
  - Injection site nodule [Recovered/Resolved]
